FAERS Safety Report 9231939 (Version 1)
Quarter: 2013Q2

REPORT INFORMATION
  Report Type: Spontaneous
  Country: JP (occurrence: JP)
  Receive Date: 20130415
  Receipt Date: 20130415
  Transmission Date: 20140414
  Serious: Yes (Other)
  Sender: FDA-Public Use
  Company Number: JP-ELI_LILLY_AND_COMPANY-JP201303004538

PATIENT
  Age: 75 Year
  Sex: Female

DRUGS (2)
  1. FORTEO [Suspect]
     Dosage: UNK
     Route: 058
     Dates: start: 20111129
  2. FORTEO [Suspect]
     Route: 058

REACTIONS (7)
  - Fall [Unknown]
  - Fracture [Unknown]
  - Dizziness [Unknown]
  - Pyrexia [Unknown]
  - Oedema peripheral [Unknown]
  - Kidney enlargement [Unknown]
  - Face oedema [Unknown]
